FAERS Safety Report 8081206-X (Version None)
Quarter: 2012Q1

REPORT INFORMATION
  Report Type: 
  Country: None (occurrence: None)
  Receive Date: 20120130
  Receipt Date: 20120125
  Transmission Date: 20120608
  Serious: Yes (Hospitalization)
  Sender: FDA-Public Use
  Company Number: IT-BAYER-2012-008160

PATIENT
  Age: 91 Year
  Sex: Male

DRUGS (5)
  1. ADALAT [Concomitant]
     Indication: HYPERTENSION
     Route: 048
  2. ASPIRIN [Suspect]
     Dosage: 100 MG, QD
     Route: 048
     Dates: start: 20080101, end: 20110919
  3. DIURESIX [Suspect]
     Dosage: DAILY DOSE 10 MG
     Route: 048
     Dates: start: 20100101, end: 20110919
  4. ENALAPRIL MALEATE [Suspect]
     Indication: HYPERTENSION
     Dosage: DAILY DOSE 20 MG
     Route: 048
     Dates: start: 20090901, end: 20110919
  5. FLECAINIDE ACETATE [Concomitant]
     Dosage: UNK
     Route: 048

REACTIONS (1)
  - AUTOIMMUNE THROMBOCYTOPENIA [None]
